FAERS Safety Report 7272473-0 (Version None)
Quarter: 2011Q1

REPORT INFORMATION
  Report Type: 
  Country: None (occurrence: None)
  Receive Date: 20110126
  Receipt Date: 20110111
  Transmission Date: 20110831
  Serious: Yes (Other)
  Sender: FDA-Public Use
  Company Number: AUR-APL-2010-01975

PATIENT
  Age: 66 Year
  Sex: Male

DRUGS (1)
  1. RANITIDINE [Suspect]
     Indication: DYSPEPSIA
     Dosage: 150MG, ORAL
     Route: 048
     Dates: start: 20100716

REACTIONS (3)
  - DYSGEUSIA [None]
  - DYSPEPSIA [None]
  - DISEASE RECURRENCE [None]
